FAERS Safety Report 9127951 (Version 2)
Quarter: 2013Q2

REPORT INFORMATION
  Report Type: Spontaneous
  Country: US (occurrence: US)
  Receive Date: 20130228
  Receipt Date: 20130517
  Transmission Date: 20140414
  Serious: Yes (Other)
  Sender: FDA-Public Use
  Company Number: US-BRISTOL-MYERS SQUIBB COMPANY-17144858

PATIENT
  Age: 50 Year
  Sex: Male

DRUGS (6)
  1. KOMBIGLYZE XR [Suspect]
     Indication: DIABETES MELLITUS
     Dosage: 1DF:2.5/1000MG
     Route: 048
     Dates: start: 20120619, end: 20121115
  2. FENOFIBRATE [Concomitant]
     Indication: HYPERLIPIDAEMIA
     Route: 048
     Dates: start: 20110308
  3. ZOCOR [Concomitant]
     Indication: HYPERLIPIDAEMIA
     Route: 048
     Dates: start: 20120905
  4. LISINOPRIL + HCTZ [Concomitant]
     Indication: HYPERTENSION
     Dosage: 1DF:20/12.5MG
     Route: 048
     Dates: start: 20110308
  5. NIASPAN [Concomitant]
     Indication: HYPERLIPIDAEMIA
     Dosage: AT NIGHT
     Dates: start: 20120905
  6. PRILOSEC [Concomitant]
     Indication: GASTROOESOPHAGEAL REFLUX DISEASE
     Dosage: AT NIGHT
     Route: 048
     Dates: start: 20120305

REACTIONS (1)
  - Pancreatitis [Not Recovered/Not Resolved]
